FAERS Safety Report 5908546-1 (Version None)
Quarter: 2008Q3

REPORT INFORMATION
  Report Type: 
  Country: None (occurrence: None)
  Receive Date: 20080929
  Receipt Date: 20080916
  Transmission Date: 20090109
  Serious: Yes (Death)
  Sender: FDA-Public Use
  Company Number: 2008AL010604

PATIENT
  Age: 64 Year
  Sex: Male

DRUGS (1)
  1. DIGOXIN [Suspect]
     Indication: MYOCARDIAL INFARCTION
     Dosage: 0.125MG,  PO
     Route: 048
     Dates: start: 20070723, end: 20070730

REACTIONS (9)
  - ANHEDONIA [None]
  - ARRHYTHMIA [None]
  - CARDIAC ARREST [None]
  - ECONOMIC PROBLEM [None]
  - ILL-DEFINED DISORDER [None]
  - MULTIPLE INJURIES [None]
  - MYOCARDIAL ISCHAEMIA [None]
  - PAIN [None]
  - THERAPEUTIC AGENT TOXICITY [None]
